FAERS Safety Report 5292143-8 (Version None)
Quarter: 2007Q2

REPORT INFORMATION
  Report Type: 
  Country: None (occurrence: None)
  Receive Date: 20070410
  Receipt Date: 20070327
  Transmission Date: 20071010
  Serious: Yes (Death, Hospitalization)
  Sender: FDA-Public Use
  Company Number: DE-GLAXOSMITHKLINE-B0351009A

PATIENT
  Age: 37 Year
  Sex: Male

DRUGS (4)
  1. LAMIVUDINE [Suspect]
     Route: 065
     Dates: start: 20020201
  2. LOPINAVIR + RITONAVIR [Suspect]
     Route: 065
     Dates: start: 20020201
  3. INDINIVIR SULFATE [Suspect]
     Route: 065
     Dates: start: 20020201
  4. TENOFOVIR DISOPROXIL FUMARATE [Suspect]
     Route: 065
     Dates: start: 20020201

REACTIONS (15)
  - ANGIOCENTRIC LYMPHOMA [None]
  - ASTHENIA [None]
  - BLOOD LACTIC ACID INCREASED [None]
  - BRAIN COMPRESSION [None]
  - BRAIN OEDEMA [None]
  - DIZZINESS [None]
  - EOSINOPHILIA [None]
  - HEADACHE [None]
  - IMMUNE RECONSTITUTION SYNDROME [None]
  - NAUSEA [None]
  - NECROSIS [None]
  - NEUROLOGICAL SYMPTOM [None]
  - PLEOCYTOSIS [None]
  - PROTEIN TOTAL INCREASED [None]
  - STATUS EPILEPTICUS [None]
